FAERS Safety Report 5205950-4 (Version None)
Quarter: 2007Q1

REPORT INFORMATION
  Report Type: 
  Country: None (occurrence: None)
  Receive Date: 20070111
  Receipt Date: 20070108
  Transmission Date: 20070707
  Serious: Yes (Death, Hospitalization)
  Sender: FDA-Public Use
  Company Number: FR-GLAXOSMITHKLINE-B0453418A

PATIENT
  Age: 70 Year
  Sex: Female

DRUGS (9)
  1. ZINNAT INJECTABLE [Suspect]
     Dosage: 750MG FOUR TIMES PER DAY
     Route: 042
     Dates: start: 20060222, end: 20060224
  2. HEPARIN [Suspect]
     Dosage: 20MG FOUR TIMES PER DAY
     Route: 042
     Dates: start: 20060222, end: 20060224
  3. CALCIPARINE [Suspect]
     Dosage: 500IU THREE TIMES PER DAY
     Route: 058
     Dates: start: 20060224, end: 20060225
  4. OMEPRAZOLE [Concomitant]
     Route: 065
  5. LASIX [Concomitant]
     Route: 065
  6. MORPHINE [Concomitant]
     Route: 065
  7. CORDARONE [Concomitant]
     Route: 065
  8. PERINDOPRIL ERBUMINE [Concomitant]
     Route: 065
  9. DAFALGAN [Concomitant]
     Route: 065

REACTIONS (3)
  - CARDIAC ARREST [None]
  - CARDIAC TAMPONADE [None]
  - THROMBOCYTOPENIA [None]
